FAERS Safety Report 20554712 (Version 1)
Quarter: 2022Q1

REPORT INFORMATION
  Report Type: Report from Study
  Country: CA (occurrence: None)
  Receive Date: 20220304
  Receipt Date: 20220304
  Transmission Date: 20220423
  Serious: Yes (Other)
  Sender: FDA-Public Use
  Company Number: CA-Eisai Medical Research-EC-2022-109707

PATIENT
  Age: 30 Year
  Sex: Female

DRUGS (4)
  1. RABEPRAZOLE [Suspect]
     Active Substance: RABEPRAZOLE
     Indication: Chronic spontaneous urticaria
     Route: 048
  2. OMALIZUMAB [Suspect]
     Active Substance: OMALIZUMAB
     Indication: Product used for unknown indication
     Dosage: FREQUENCY UNKNOWN
     Route: 058
  3. EPIPEN JR [Concomitant]
     Active Substance: EPINEPHRINE
     Indication: Product used for unknown indication
     Route: 030
  4. REACTINE [Concomitant]
     Indication: Product used for unknown indication
     Route: 065

REACTIONS (20)
  - Anxiety [Unknown]
  - Blood pressure systolic increased [Unknown]
  - Dyspnoea [Unknown]
  - Feeling hot [Unknown]
  - Flushing [Unknown]
  - Haematemesis [Unknown]
  - Hypoacusis [Unknown]
  - Pharyngeal swelling [Unknown]
  - Presyncope [Unknown]
  - Respiratory symptom [Unknown]
  - Skin discolouration [Unknown]
  - Skin lesion [Unknown]
  - Syncope [Unknown]
  - Urticaria [Unknown]
  - Product use in unapproved indication [Unknown]
  - Vomiting [Unknown]
  - Nausea [Unknown]
  - Angioedema [Unknown]
  - Anaphylactic reaction [Unknown]
  - Dizziness [Unknown]
